FAERS Safety Report 7604898-5 (Version None)
Quarter: 2011Q3

REPORT INFORMATION
  Report Type: 
  Country: None (occurrence: None)
  Receive Date: 20110712
  Receipt Date: 20110708
  Transmission Date: 20111222
  Serious: Yes (Other)
  Sender: FDA-Public Use
  Company Number: US-BRISTOL-MYERS SQUIBB COMPANY-15893696

PATIENT

DRUGS (1)
  1. ERBITUX [Suspect]
     Dosage: NO OF DOSES:1

REACTIONS (1)
  - INTESTINAL PERFORATION [None]
